FAERS Safety Report 4570713-X (Version None)
Quarter: 2005Q1

REPORT INFORMATION
  Report Type: 
  Country: None (occurrence: None)
  Receive Date: 20050202
  Receipt Date: 20050118
  Transmission Date: 20050727
  Serious: Yes (Hospitalization)
  Sender: FDA-Public Use
  Company Number: FR_050105629

PATIENT
  Age: 40 Year
  Sex: Male

DRUGS (3)
  1. ZYPREXA [Suspect]
     Indication: SCHIZOPHRENIA
     Dosage: 20 MG DAY
     Dates: start: 20041201
  2. XANAX (ALPRAZOLAM DUM) [Concomitant]
  3. TERCIAN (CYAMEMAZINE) [Concomitant]

REACTIONS (2)
  - ANURIA [None]
  - URINARY RETENTION [None]
